FAERS Safety Report 23992386 (Version 2)
Quarter: 2024Q3

REPORT INFORMATION
  Report Type: Spontaneous
  Country: CN (occurrence: CN)
  Receive Date: 20240620
  Receipt Date: 20240703
  Transmission Date: 20241017
  Serious: Yes (Other)
  Sender: ROCHE
  Company Number: CN-ROCHE-10000002337

PATIENT
  Age: 43 Year
  Sex: Female
  Weight: 63 kg

DRUGS (2)
  1. TRASTUZUMAB EMTANSINE [Suspect]
     Active Substance: TRASTUZUMAB EMTANSINE
     Indication: Neoplasm malignant
     Route: 042
     Dates: start: 20240608, end: 20240608
  2. TRASTUZUMAB EMTANSINE [Suspect]
     Active Substance: TRASTUZUMAB EMTANSINE
     Indication: Targeted cancer therapy

REACTIONS (2)
  - Myelosuppression [Recovering/Resolving]
  - Liver injury [Recovering/Resolving]

NARRATIVE: CASE EVENT DATE: 20240610
